FAERS Safety Report 8251396-4 (Version None)
Quarter: 2012Q2

REPORT INFORMATION
  Report Type: 
  Country: None (occurrence: None)
  Receive Date: 20120402
  Receipt Date: 20120321
  Transmission Date: 20120825
  Serious: No
  Sender: FDA-Public Use
  Company Number: US-PFIZER INC-2012080692

PATIENT
  Sex: Female
  Weight: 109 kg

DRUGS (2)
  1. IBUPROFEN [Suspect]
     Route: 065
  2. NEURONTIN [Suspect]
     Dosage: UNK
     Route: 065

REACTIONS (1)
  - HYPERSENSITIVITY [None]
